FAERS Safety Report 6388532-0 (Version None)
Quarter: 2009Q3

REPORT INFORMATION
  Report Type: 
  Country: None (occurrence: None)
  Receive Date: 20090930
  Receipt Date: 20090923
  Transmission Date: 20100115
  Serious: Yes (Death)
  Sender: FDA-Public Use
  Company Number: ENTC2009-0320

PATIENT
  Age: 71 Year
  Sex: Male

DRUGS (4)
  1. STALEVO 100 [Suspect]
     Indication: PARKINSON'S DISEASE
     Dosage: 50/12.5/200 MG, 3 TABLETS DAILY
     Route: 048
     Dates: start: 20070601
  2. LEVODOPA [Concomitant]
  3. SIFROL [Concomitant]
  4. PROPRANOLOL [Concomitant]

REACTIONS (1)
  - INFARCTION [None]
